FAERS Safety Report 14673713 (Version 5)
Quarter: 2019Q1

REPORT INFORMATION
  Report Type: Report from Study
  Country: ES (occurrence: ES)
  Receive Date: 20180323
  Receipt Date: 20190208
  Transmission Date: 20190417
  Serious: Yes (Hospitalization)
  Sender: FDA-Public Use
  Company Number: ES-ROCHE-2089538

PATIENT
  Age: 75 Year
  Sex: Male
  Weight: 95 kg

DRUGS (18)
  1. COBIMETINIB. [Suspect]
     Active Substance: COBIMETINIB
     Indication: METASTATIC MALIGNANT MELANOMA
     Dosage: DATE OF LAST DOSE OF COBIMETINIB (60 MG) AT 09/MAR/2018
     Route: 048
     Dates: start: 20170516
  2. DIOSMINE [Concomitant]
     Active Substance: DIOSMIN
     Route: 048
     Dates: start: 20170607
  3. VALSARTAN. [Concomitant]
     Active Substance: VALSARTAN
     Indication: HYPERTENSION
     Route: 048
     Dates: start: 20170720
  4. ZOLPIDEM [Concomitant]
     Active Substance: ZOLPIDEM\ZOLPIDEM TARTRATE
     Route: 048
     Dates: start: 20171003
  5. BETAHISTINE [Concomitant]
     Active Substance: BETAHISTINE
     Route: 048
     Dates: start: 20171020
  6. AMOXICILLIN. [Concomitant]
     Active Substance: AMOXICILLIN
     Indication: ORAL INFECTION
     Route: 048
     Dates: start: 20180222, end: 20180226
  7. PHOSPHOROUS ACID [Concomitant]
     Indication: HYPOPHOSPHATAEMIA
     Route: 048
     Dates: start: 20170707
  8. PHOSPHOROUS ACID [Concomitant]
     Route: 001
     Dates: start: 20171103
  9. CAPTOPRIL. [Concomitant]
     Active Substance: CAPTOPRIL
     Indication: HYPERTENSION
     Dosage: AS NEEDED
     Route: 048
     Dates: start: 20170619
  10. FUROSEMIDE. [Concomitant]
     Active Substance: FUROSEMIDE
     Route: 048
     Dates: start: 20171214
  11. SERC (SPAIN) [Concomitant]
     Route: 048
     Dates: start: 20180208
  12. PLACEBO [Suspect]
     Active Substance: UNSPECIFIED INGREDIENT
     Indication: METASTATIC MALIGNANT MELANOMA
     Dosage: MOST RECENT DOSE PRIOR TO AE ONSET WAS 08/MAR/2018
     Route: 042
     Dates: start: 20170615
  13. PANTOPRAZOLE [Concomitant]
     Active Substance: PANTOPRAZOLE
     Route: 065
     Dates: start: 20170720
  14. FENOFIBRATE. [Concomitant]
     Active Substance: FENOFIBRATE
     Indication: HYPERTRIGLYCERIDAEMIA
     Route: 048
     Dates: start: 20171130
  15. VEMURAFENIB. [Suspect]
     Active Substance: VEMURAFENIB
     Indication: METASTATIC MALIGNANT MELANOMA
     Dosage: DATE OF MOST RECENT DOSE OF VEMURAFENIB PRIOR TO AE ONSET: 09/MAR/2018
     Route: 048
     Dates: start: 20170516
  16. ATORVASTATINE [Concomitant]
     Active Substance: ATORVASTATIN
     Indication: HYPERTRIGLYCERIDAEMIA
     Route: 048
     Dates: start: 20170623
  17. IBUPROFEN. [Concomitant]
     Active Substance: IBUPROFEN
     Indication: DERMATITIS
     Route: 048
     Dates: start: 20170807
  18. AMOXICILLIN. [Concomitant]
     Active Substance: AMOXICILLIN
     Indication: TOOTH ABSCESS
     Route: 048
     Dates: start: 20180227, end: 20180306

REACTIONS (2)
  - Pneumonia [Recovered/Resolved]
  - Pneumonitis [Recovered/Resolved]

NARRATIVE: CASE EVENT DATE: 20180309
